FAERS Safety Report 19094297 (Version 1)
Quarter: 2021Q2

REPORT INFORMATION
  Report Type: Spontaneous
  Country: AT (occurrence: AT)
  Receive Date: 20210405
  Receipt Date: 20210405
  Transmission Date: 20210717
  Serious: Yes (Hospitalization)
  Sender: FDA-Public Use
  Company Number: AT-PFIZER INC-2021329894

PATIENT
  Age: 64 Year
  Sex: Male

DRUGS (3)
  1. HALCION [Suspect]
     Active Substance: TRIAZOLAM
     Dosage: 0.5 DF
  2. HALCION [Suspect]
     Active Substance: TRIAZOLAM
     Dosage: 1 DF
  3. HALCION [Suspect]
     Active Substance: TRIAZOLAM
     Dosage: 0.25 DF

REACTIONS (3)
  - Incorrect product administration duration [Unknown]
  - Gait disturbance [Unknown]
  - Intentional product use issue [Unknown]
